FAERS Safety Report 17229719 (Version 2)
Quarter: 2020Q1

REPORT INFORMATION
  Report Type: Spontaneous
  Country: US (occurrence: US)
  Receive Date: 20200103
  Receipt Date: 20200109
  Transmission Date: 20200409
  Serious: Yes (Other)
  Sender: FDA-Public Use
  Company Number: US-HORIZON-PRO-0002-2020

PATIENT
  Age: 29 Year
  Sex: Male

DRUGS (1)
  1. PROCYSBI [Suspect]
     Active Substance: CYSTEAMINE BITARTRATE
     Indication: CYSTINOSIS
     Dosage: ^5 BIG ONES AND 2 LITTLE ONES^
     Dates: end: 201906

REACTIONS (5)
  - Myocardial infarction [Unknown]
  - Heart rate increased [Unknown]
  - Blood pressure increased [Unknown]
  - Abdominal discomfort [Unknown]
  - Dialysis [Unknown]

NARRATIVE: CASE EVENT DATE: 2019
